FAERS Safety Report 23349832 (Version 1)
Quarter: 2023Q4

REPORT INFORMATION
  Report Type: Spontaneous
  Country: JP (occurrence: None)
  Receive Date: 20231229
  Receipt Date: 20231229
  Transmission Date: 20240109
  Serious: Yes (Hospitalization)
  Sender: FDA-Public Use
  Company Number: 2023A293169

PATIENT
  Age: 69 Year
  Sex: Female
  Weight: 65 kg

DRUGS (20)
  1. SAPHNELO [Suspect]
     Active Substance: ANIFROLUMAB-FNIA
     Indication: Systemic lupus erythematosus
     Dosage: 300.0MG UNKNOWN
     Route: 041
     Dates: start: 20220420, end: 20230816
  2. PREDNISOLONE [Suspect]
     Active Substance: PREDNISOLONE
     Indication: Systemic lupus erythematosus
     Dosage: 10.0MG UNKNOWN
  3. PREDNISOLONE [Suspect]
     Active Substance: PREDNISOLONE
     Indication: Systemic lupus erythematosus
     Dosage: NUMBER OF SEPARATE DOSAGES UNKNOWN9.0MG UNKNOWN
     Dates: end: 20220614
  4. PREDNISOLONE [Suspect]
     Active Substance: PREDNISOLONE
     Indication: Systemic lupus erythematosus
     Dosage: NUMBER OF SEPARATE DOSAGES UNKNOWN8.0MG UNKNOWN
     Dates: start: 20220615, end: 20220712
  5. PREDNISOLONE [Suspect]
     Active Substance: PREDNISOLONE
     Indication: Systemic lupus erythematosus
     Dosage: NUMBER OF SEPARATE DOSAGES UNKNOWN7.0MG UNKNOWN
     Dates: start: 20220713, end: 20220906
  6. PREDNISOLONE [Suspect]
     Active Substance: PREDNISOLONE
     Indication: Systemic lupus erythematosus
     Dosage: NUMBER OF SEPARATE DOSAGES UNKNOWN6.0MG UNKNOWN
     Dates: start: 20220907, end: 20221220
  7. PREDNISOLONE [Suspect]
     Active Substance: PREDNISOLONE
     Indication: Systemic lupus erythematosus
     Dosage: NUMBER OF SEPARATE DOSAGES UNKNOWN5.0MG UNKNOWN
     Route: 065
     Dates: start: 20221221
  8. LANSOPRAZOLE [Concomitant]
     Active Substance: LANSOPRAZOLE
     Indication: Gastrooesophageal reflux disease
     Dosage: NUMBER OF SEPARATE DOSAGES UNKNOWN15.0MG UNKNOWN
     Route: 048
  9. AMLODIPINE [Concomitant]
     Active Substance: AMLODIPINE BESYLATE
     Indication: Hypertension
     Dosage: NUMBER OF SEPARATE DOSAGES UNKNOWN5.0MG UNKNOWN
     Route: 048
     Dates: end: 20230228
  10. AMLODIPINE [Concomitant]
     Active Substance: AMLODIPINE BESYLATE
     Indication: Hypertension
     Dosage: NUMBER OF SEPARATE DOSAGES UNKNOWN2.5MG UNKNOWN
     Route: 048
     Dates: start: 20230301
  11. SULFAMETHOXAZOLE\TRIMETHOPRIM [Concomitant]
     Active Substance: SULFAMETHOXAZOLE\TRIMETHOPRIM
     Indication: Prophylaxis
     Dosage: NUMBER OF SEPARATE DOSAGES UNKNOWN0.3G UNKNOWN
     Route: 048
  12. ALFACALCIDOL [Concomitant]
     Active Substance: ALFACALCIDOL
     Indication: Osteoporosis
     Dosage: NUMBER OF SEPARATE DOSAGES UNKNOWN0.25UG UNKNOWN
     Route: 048
  13. MYCOPHENOLATE MOFETIL [Concomitant]
     Active Substance: MYCOPHENOLATE MOFETIL
     Indication: Lupus nephritis
     Dosage: NUMBER OF SEPARATE DOSAGES UNKNOWN1000.0MG UNKNOWN
     Route: 048
     Dates: end: 20230411
  14. MYCOPHENOLATE MOFETIL [Concomitant]
     Active Substance: MYCOPHENOLATE MOFETIL
     Indication: Lupus nephritis
     Dosage: NUMBER OF SEPARATE DOSAGES UNKNOWN750.0MG UNKNOWN
     Route: 048
     Dates: start: 20230412
  15. ACETAMINOPHEN\TRAMADOL HYDROCHLORIDE [Concomitant]
     Active Substance: ACETAMINOPHEN\TRAMADOL HYDROCHLORIDE
     Indication: Osteonecrosis
     Dosage: DOSE UNKNOWN
     Route: 048
  16. ZOLPIDEM TARTRATE [Concomitant]
     Active Substance: ZOLPIDEM TARTRATE
     Indication: Insomnia
     Dosage: NUMBER OF SEPARATE DOSAGES UNKNOWN10.0MG UNKNOWN
     Route: 048
  17. AZULENE [Concomitant]
     Active Substance: AZULENE
     Indication: Stomatitis
     Dosage: DOSE UNKNOWN UNKNOWN
     Route: 049
  18. MIRABEGRON [Concomitant]
     Active Substance: MIRABEGRON
     Indication: Hypertonic bladder
     Dosage: NUMBER OF SEPARATE DOSAGES UNKNOWN25.0MG UNKNOWN
     Route: 048
     Dates: start: 20221116, end: 20230228
  19. MIRABEGRON [Concomitant]
     Active Substance: MIRABEGRON
     Indication: Hypertonic bladder
     Dosage: NUMBER OF SEPARATE DOSAGES UNKNOWN25.0MG UNKNOWN
     Route: 048
     Dates: start: 20230412
  20. SENNOSIDES [Concomitant]
     Active Substance: SENNOSIDES
     Indication: Constipation
     Dosage: NUMBER OF SEPARATE DOSAGES UNKNOWN24.0MG UNKNOWN
     Route: 048
     Dates: end: 20220607

REACTIONS (2)
  - Lumbar spinal stenosis [Unknown]
  - Postoperative wound infection [Recovered/Resolved]

NARRATIVE: CASE EVENT DATE: 20230921
